FAERS Safety Report 5123453-2 (Version None)
Quarter: 2006Q4

REPORT INFORMATION
  Report Type: 
  Country: None (occurrence: None)
  Receive Date: 20061009
  Receipt Date: 20060929
  Transmission Date: 20070319
  Serious: Yes (Other)
  Sender: FDA-Public Use
  Company Number: GB-GILEAD-2006-0010365

PATIENT
  Sex: Male

DRUGS (6)
  1. VIREAD [Suspect]
     Indication: HIV INFECTION
     Route: 048
     Dates: start: 20040413, end: 20060802
  2. ATAZANAVIR [Concomitant]
     Indication: HIV INFECTION
     Route: 048
     Dates: start: 20040413
  3. DIDANOSINE [Concomitant]
     Indication: HIV INFECTION
     Route: 048
     Dates: start: 20040413
  4. RITONAVIR [Concomitant]
     Indication: HIV INFECTION
     Dates: start: 20040413
  5. ACYCLOVIR [Concomitant]
     Dates: start: 20020101
  6. ATORVASTATIN CALCIUM [Concomitant]
     Route: 048
     Dates: start: 20040413

REACTIONS (7)
  - ACIDOSIS [None]
  - BLOOD BICARBONATE DECREASED [None]
  - BLOOD CREATININE INCREASED [None]
  - GLYCOSURIA [None]
  - HAEMATURIA [None]
  - HYPOPHOSPHATAEMIA [None]
  - RENAL TUBULAR ACIDOSIS [None]
